FAERS Safety Report 10638601 (Version 1)
Quarter: 2014Q4

REPORT INFORMATION
  Report Type: Spontaneous
  Country: US (occurrence: US)
  Receive Date: 20141208
  Receipt Date: 20141208
  Transmission Date: 20150529
  Serious: Yes (Other)
  Sender: FDA-Public Use
  Company Number: US-TEVA-526755USA

PATIENT
  Age: 40 Year
  Sex: Female

DRUGS (2)
  1. METOPROLOL [Suspect]
     Active Substance: METOPROLOL
     Indication: ISCHAEMIC CARDIOMYOPATHY
     Route: 065
  2. CARVEDILOL. [Suspect]
     Active Substance: CARVEDILOL
     Route: 065

REACTIONS (3)
  - Rash vesicular [Recovering/Resolving]
  - Angioedema [Recovering/Resolving]
  - Rash pruritic [Recovering/Resolving]
